FAERS Safety Report 6824653-3 (Version None)
Quarter: 2010Q3

REPORT INFORMATION
  Report Type: 
  Country: None (occurrence: None)
  Receive Date: 20100708
  Receipt Date: 20061113
  Transmission Date: 20110219
  Serious: No
  Sender: FDA-Public Use
  Company Number: US-PFIZER INC-2006142182

PATIENT
  Sex: Female
  Weight: 65.32 kg

DRUGS (5)
  1. CHANTIX [Suspect]
     Indication: SMOKING CESSATION THERAPY
     Dates: start: 20061012
  2. PERCOCET [Concomitant]
  3. WARFARIN SODIUM [Concomitant]
  4. FLEXERIL [Concomitant]
  5. CELEXA [Concomitant]

REACTIONS (1)
  - DRUG INEFFECTIVE [None]
